FAERS Safety Report 7875925-5 (Version None)
Quarter: 2011Q4

REPORT INFORMATION
  Report Type: 
  Country: None (occurrence: None)
  Receive Date: 20111031
  Receipt Date: 20111024
  Transmission Date: 20120403
  Serious: Yes (Death, Hospitalization, Other)
  Sender: FDA-Public Use
  Company Number: GB-GENZYME-200826486GPV

PATIENT
  Age: 62 Year
  Sex: Male

DRUGS (7)
  1. MELPHALAN HYDROCHLORIDE [Suspect]
     Indication: STEM CELL TRANSPLANT
     Dosage: UNK
     Route: 065
  2. MELPHALAN HYDROCHLORIDE [Suspect]
     Indication: REFRACTORY ANAEMIA
  3. CYCLOSPORINE [Concomitant]
     Indication: PROPHYLAXIS AGAINST GRAFT VERSUS HOST DISEASE
     Dosage: UNK
  4. CAMPATH [Suspect]
     Indication: STEM CELL TRANSPLANT
     Dosage: 10 MG QD, DAYS -1 TO -3
     Route: 065
  5. FLUDARA [Suspect]
     Indication: STEM CELL TRANSPLANT
     Dosage: UNK
     Route: 065
  6. FLUDARA [Suspect]
     Indication: REFRACTORY ANAEMIA
  7. CAMPATH [Suspect]
     Indication: REFRACTORY ANAEMIA

REACTIONS (8)
  - SINUS CONGESTION [None]
  - OROPHARYNGEAL PAIN [None]
  - DYSPHAGIA [None]
  - DYSPNOEA [None]
  - EPSTEIN-BARR VIRUS ASSOCIATED LYMPHOPROLIFERATIVE DISORDER [None]
  - EPSTEIN-BARR VIRUS INFECTION [None]
  - HYPOXIA [None]
  - PYREXIA [None]
